FAERS Safety Report 7996472 (Version 10)
Quarter: 2015Q2

REPORT INFORMATION
  Report Type: Report from Study
  Country: DE (occurrence: DE)
  Receive Date: 20110617
  Receipt Date: 20150626
  Transmission Date: 20150821
  Serious: Yes (Hospitalization)
  Sender: FDA-Public Use
  Company Number: DE-UCBSA-034725

PATIENT
  Sex: Male
  Weight: 70 kg

DRUGS (6)
  1. CITALOPRAM [Concomitant]
     Active Substance: CITALOPRAM HYDROBROMIDE
     Dosage: 20MG, 1/2-0-0
  2. TRAMADOL [Concomitant]
     Active Substance: TRAMADOL
     Dosage: 100MG, 1-0-1
  3. METHOTREXATE [Concomitant]
     Active Substance: METHOTREXATE
     Indication: RHEUMATOID ARTHRITIS
     Dosage: QS
     Route: 048
     Dates: end: 20110322
  4. DICLO 75 [Concomitant]
     Indication: RHEUMATOID ARTHRITIS
     Dosage: 150 MG, 2X/DAY (BID)
     Route: 048
     Dates: start: 201101, end: 20110301
  5. CERTOLIZUMAB PEGOL RA [Suspect]
     Active Substance: CERTOLIZUMAB PEGOL
     Indication: RHEUMATOID ARTHRITIS
     Dosage: NO. OF DOSES RECEIVED: 2
     Route: 058
     Dates: start: 20110301, end: 20110322
  6. CALCIUM D3 [Concomitant]
     Active Substance: CALCIUM\CHOLECALCIFEROL
     Dosage: 3 G, ONCE DAILY (QD)

REACTIONS (1)
  - Pleural effusion [Recovered/Resolved]

NARRATIVE: CASE EVENT DATE: 20110306
